FAERS Safety Report 8682157 (Version 5)
Quarter: 2013Q1

REPORT INFORMATION
  Report Type: Spontaneous
  Country: US (occurrence: US)
  Receive Date: 20120725
  Receipt Date: 20130115
  Transmission Date: 20140127
  Serious: Yes (Hospitalization)
  Sender: FDA-Public Use
  Company Number: US-GILEAD-2012-0058269

PATIENT
  Sex: Male

DRUGS (1)
  1. LETAIRIS [Suspect]
     Indication: PULMONARY ARTERIAL HYPERTENSION
     Dosage: 5 MG, UNK
     Route: 048
     Dates: start: 20120702, end: 20120720

REACTIONS (9)
  - White blood cell count increased [Unknown]
  - Atrial fibrillation [Unknown]
  - Chronic obstructive pulmonary disease [Unknown]
  - Respiratory distress [Unknown]
  - Cardiac failure congestive [Unknown]
  - Influenza like illness [Unknown]
  - Dyspnoea [Unknown]
  - Local swelling [Unknown]
  - Fluid overload [Unknown]
